FAERS Safety Report 4396808-1 (Version None)
Quarter: 2004Q3

REPORT INFORMATION
  Report Type: 
  Country: None (occurrence: None)
  Receive Date: 20040714
  Receipt Date: 20040629
  Transmission Date: 20050211
  Serious: Yes (Hospitalization)
  Sender: FDA-Public Use
  Company Number: PHNU2004DE02305

PATIENT
  Age: 60 Year
  Sex: Male
  Weight: 75 kg

DRUGS (3)
  1. ZOMETA [Suspect]
     Indication: PROSTATE CANCER METASTATIC
     Dosage: 4 MG, ONCE/SINGLE
     Route: 042
     Dates: start: 20040201, end: 20040616
  2. CHEMOTHERAPEUTICS,OTHER [Concomitant]
     Route: 065
  3. TRENANTONE [Concomitant]
     Route: 058
     Dates: start: 20040610, end: 20040616

REACTIONS (1)
  - MYOCARDIAL INFARCTION [None]
